FAERS Safety Report 21442494 (Version 1)
Quarter: 2022Q4

REPORT INFORMATION
  Report Type: Spontaneous
  Country: US (occurrence: None)
  Receive Date: 20221010
  Receipt Date: 20221010
  Transmission Date: 20230112
  Serious: No
  Sender: FDA-Public Use
  Company Number: None

PATIENT
  Sex: Female

DRUGS (1)
  1. DIMETHYL FUMARATE [Suspect]
     Active Substance: DIMETHYL FUMARATE
     Dosage: FREQUENCY : TWICE A DAY;?
     Route: 048

REACTIONS (9)
  - Cholelithiasis [None]
  - Abdominal pain upper [None]
  - Chest pain [None]
  - Dyspepsia [None]
  - Peripheral swelling [None]
  - Joint swelling [None]
  - Renal pain [None]
  - Dysuria [None]
  - Urine odour abnormal [None]
